FAERS Safety Report 21703065 (Version 1)
Quarter: 2022Q4

REPORT INFORMATION
  Report Type: Spontaneous
  Country: US (occurrence: US)
  Receive Date: 20221209
  Receipt Date: 20221209
  Transmission Date: 20230112
  Serious: No
  Sender: FDA-Public Use
  Company Number: US-drreddys-SPO/USA/22/0157618

PATIENT
  Age: 24 Year

DRUGS (1)
  1. ACCUTANE [Suspect]
     Active Substance: ISOTRETINOIN
     Indication: Acne
     Dosage: RMA ISSUE DATE: 12 MAY 2022 10:57:34 AM, 13 JUNE 2022 04:06:44 PM, 14 JULY 2022 02:42:53 PM, 15 AUGU

REACTIONS (1)
  - Tinnitus [Unknown]
